FAERS Safety Report 10228679 (Version 1)
Quarter: 2014Q2

REPORT INFORMATION
  Report Type: Spontaneous
  Country: US (occurrence: US)
  Receive Date: 20140610
  Receipt Date: 20140610
  Transmission Date: 20141212
  Serious: Yes (Other)
  Sender: FDA-Public Use
  Company Number: US-PFIZER INC-2014153435

PATIENT
  Age: 65 Year
  Sex: Male

DRUGS (2)
  1. EFFEXOR XR [Suspect]
     Dosage: 150 MG, UNK
     Dates: start: 200407
  2. PAMELOR [Suspect]
     Dosage: UNK

REACTIONS (2)
  - Hernia [Unknown]
  - Constipation [Unknown]
